FAERS Safety Report 24733420 (Version 1)
Quarter: 2024Q4

REPORT INFORMATION
  Report Type: Spontaneous
  Country: CA (occurrence: CA)
  Receive Date: 20241213
  Receipt Date: 20241213
  Transmission Date: 20250115
  Serious: Yes (Other)
  Sender: TEVA
  Company Number: CA-TEVA-VS-3272425

PATIENT
  Age: 83 Year
  Sex: Female

DRUGS (3)
  1. ALBUTEROL SULFATE [Suspect]
     Active Substance: ALBUTEROL SULFATE
     Indication: Asthma
     Dosage: METERED DOSE AEROSOL, FORM STRENGTH: 100MCG/DOSE, SINCE THE 90S
     Route: 055
  2. FLOVENT [Concomitant]
     Active Substance: FLUTICASONE PROPIONATE
     Indication: Product used for unknown indication
     Dosage: RED PUMP
     Route: 065
  3. WARFARIN [Concomitant]
     Active Substance: WARFARIN
     Indication: Product used for unknown indication
     Dosage: SINCE HER STROKE 8 YEARS AGO
     Route: 065

REACTIONS (14)
  - Respiratory tract infection [Unknown]
  - Dyspnoea [Recovering/Resolving]
  - Sinusitis [Unknown]
  - Injury [Unknown]
  - Illness [Unknown]
  - Cough [Unknown]
  - Chest pain [Unknown]
  - Hemiplegia [Not Recovered/Not Resolved]
  - Cataract [Unknown]
  - Visual impairment [Not Recovered/Not Resolved]
  - Living in residential institution [Unknown]
  - Cerebrovascular accident [Unknown]
  - Memory impairment [Not Recovered/Not Resolved]
  - Malaise [Unknown]

NARRATIVE: CASE EVENT DATE: 20240101
